FAERS Safety Report 13912590 (Version 2)
Quarter: 2017Q4

REPORT INFORMATION
  Report Type: Spontaneous
  Country: BR (occurrence: BR)
  Receive Date: 20170828
  Receipt Date: 20171223
  Transmission Date: 20180320
  Serious: No
  Sender: FDA-Public Use
  Company Number: PHHY2017BR125956

PATIENT
  Sex: Female

DRUGS (1)
  1. COSENTYX [Suspect]
     Active Substance: SECUKINUMAB
     Indication: PSORIATIC ARTHROPATHY
     Dosage: 300 MG, QMO
     Route: 058

REACTIONS (2)
  - Colitis [Unknown]
  - Colitis [Recovered/Resolved]
